FAERS Safety Report 10377813 (Version 1)
Quarter: 2014Q1

REPORT INFORMATION
  Report Type: Spontaneous
  Country: US (occurrence: None)
  Receive Date: 20140306
  Receipt Date: 20140306
  Transmission Date: 20141002
  Serious: Yes (Hospitalization, Other)
  Sender: FDA-Public Use
  Company Number: 163-21880-13031587

PATIENT
  Age: 71 Year
  Sex: Male
  Weight: 81.65 kg

DRUGS (9)
  1. REVLIMID (LENALIDOMIDE) (10 MILLIGRAM, CAPSULES) [Suspect]
     Indication: PLASMA CELL MYELOMA
     Route: 048
     Dates: start: 20120311
  2. ACYCLOVIR (ACICLOVIR) (TABLETS) [Concomitant]
  3. AMLODIPINE BESYLATE (AMLODIPINE BESILATE) (UNKNOWN) [Concomitant]
  4. ANTIOXIDANT (SELETOP-C) (TABLETS) [Concomitant]
  5. BABY ASPIRIN (ACETYLSALICYLIC ACID) (TABLETS) [Concomitant]
  6. CELEXA (CITALOPRAM HYDROBROMIDE) (TABLETS) [Concomitant]
  7. DEXAMETHASONE (DEXAMETHASONE) (UNKNOWN) [Concomitant]
  8. DIGESTIVE ENZYMES (DIGESTIVES ENZYMES) (UNKNOWN) [Concomitant]
  9. MUCINEX (GUAIFENESIN) (TABLETS) [Concomitant]

REACTIONS (4)
  - Pyrexia [None]
  - Diarrhoea [None]
  - Nausea [None]
  - Upper respiratory tract infection [None]
